FAERS Safety Report 7919014-X (Version None)
Quarter: 2011Q4

REPORT INFORMATION
  Report Type: 
  Country: None (occurrence: None)
  Receive Date: 20111116
  Receipt Date: 20111107
  Transmission Date: 20120403
  Serious: Yes (Other)
  Sender: FDA-Public Use
  Company Number: US-ASTRAZENECA-2011SE67743

PATIENT
  Age: 77 Year
  Sex: Female

DRUGS (2)
  1. UNSPECIFIED DRUG [Suspect]
     Route: 065
  2. ATACAND [Suspect]
     Route: 048

REACTIONS (5)
  - CANDIDIASIS [None]
  - INTRACRANIAL ANEURYSM [None]
  - AORTIC ANEURYSM [None]
  - CEREBROVASCULAR ACCIDENT [None]
  - ANEURYSM [None]
